FAERS Safety Report 25331242 (Version 2)
Quarter: 2025Q3

REPORT INFORMATION
  Report Type: Spontaneous
  Country: BR (occurrence: BR)
  Receive Date: 20250519
  Receipt Date: 20250911
  Transmission Date: 20251021
  Serious: Yes (Hospitalization, Other)
  Sender: PFIZER
  Company Number: BR-PFIZER INC-202500094487

PATIENT
  Age: 67 Year
  Sex: Male
  Weight: 64 kg

DRUGS (4)
  1. LORAZEPAM [Suspect]
     Active Substance: LORAZEPAM
     Route: 048
  2. DEPAKOTE ER [Concomitant]
     Active Substance: DIVALPROEX SODIUM
  3. TRAZODONE HYDROCHLORIDE [Concomitant]
     Active Substance: TRAZODONE HYDROCHLORIDE
  4. PAMELOR [Concomitant]
     Active Substance: NORTRIPTYLINE HYDROCHLORIDE

REACTIONS (7)
  - Fall [Unknown]
  - Femur fracture [Unknown]
  - Drug dependence [Recovered/Resolved]
  - Nervousness [Unknown]
  - Palpitations [Unknown]
  - Withdrawal syndrome [Recovered/Resolved]
  - Product use issue [Recovered/Resolved]
